FAERS Safety Report 10558796 (Version 1)
Quarter: 2014Q4

REPORT INFORMATION
  Report Type: Spontaneous
  Country: US (occurrence: US)
  Receive Date: 20141031
  Receipt Date: 20141031
  Transmission Date: 20150529
  Serious: Yes (Other)
  Sender: FDA-Public Use
  Company Number: US-GE HEALTHCARE MEDICAL DIAGNOSTICS-HYPQ-PR-1410S-0003

PATIENT
  Sex: Female

DRUGS (2)
  1. HYPAQUE SODIUM [Suspect]
     Active Substance: DIATRIZOATE SODIUM
     Indication: DIAGNOSTIC PROCEDURE
  2. HYPAQUE SODIUM [Suspect]
     Active Substance: DIATRIZOATE SODIUM
     Indication: PRODUCT USED FOR UNKNOWN INDICATION
     Dosage: DOSE NOT REPORTED
     Route: 065

REACTIONS (1)
  - Blood pressure decreased [Unknown]
